FAERS Safety Report 4319895-5 (Version None)
Quarter: 2004Q1

REPORT INFORMATION
  Report Type: 
  Country: None (occurrence: None)
  Receive Date: 20040319
  Receipt Date: 20040114
  Transmission Date: 20041129
  Serious: Yes (Other)
  Sender: FDA-Public Use
  Company Number: PHBS2004BE00864

PATIENT
  Age: 56 Year
  Sex: Female

DRUGS (5)
  1. FEMARA [Suspect]
     Indication: BREAST CANCER STAGE III
     Route: 048
     Dates: start: 20040101, end: 20040113
  2. GLUCOPHAG [Concomitant]
  3. FOLIC ACID [Concomitant]
  4. DAKAR [Concomitant]
  5. POLYVITAMIN [Concomitant]

REACTIONS (6)
  - DYSPNOEA EXERTIONAL [None]
  - FATIGUE [None]
  - HYPOTENSION [None]
  - INFLUENZA [None]
  - ORTHOSTATIC HYPOTENSION [None]
  - PHLEBITIS [None]
